FAERS Safety Report 25750069 (Version 1)
Quarter: 2025Q3

REPORT INFORMATION
  Report Type: Spontaneous
  Country: EU (occurrence: EU)
  Receive Date: 20250902
  Receipt Date: 20250902
  Transmission Date: 20251020
  Serious: Yes (Other)
  Sender: ORGANON
  Company Number: EU-009507513-1207FRA000904

PATIENT
  Age: 72 Year
  Sex: Male

DRUGS (11)
  1. SINGULAIR [Suspect]
     Active Substance: MONTELUKAST SODIUM
  2. DEXCHLORPHENIRAMINE MALEATE [Suspect]
     Active Substance: DEXCHLORPHENIRAMINE MALEATE
     Indication: Product used for unknown indication
     Route: 048
     Dates: end: 20110415
  3. ZOFRAN [Suspect]
     Active Substance: ONDANSETRON HYDROCHLORIDE
     Indication: Lung disorder
     Route: 048
     Dates: end: 20101210
  4. VFEND [Suspect]
     Active Substance: VORICONAZOLE
     Indication: Lung disorder
     Dosage: 50 MG, BID
     Route: 048
     Dates: start: 201111
  5. MABTHERA [Suspect]
     Active Substance: RITUXIMAB
     Indication: Lymphoma
     Route: 042
     Dates: end: 20110415
  6. OXALIPLATIN [Suspect]
     Active Substance: OXALIPLATIN
     Indication: Lymphoma
     Route: 042
     Dates: end: 20101210
  7. CYTARABINE [Suspect]
     Active Substance: CYTARABINE
     Indication: Lymphoma
     Route: 042
     Dates: end: 20101210
  8. METHYLPREDNISOLONE [Suspect]
     Active Substance: METHYLPREDNISOLONE
     Indication: Product used for unknown indication
     Route: 042
     Dates: end: 20110415
  9. ALIZAPRIDE HYDROCHLORIDE [Suspect]
     Active Substance: ALIZAPRIDE HYDROCHLORIDE
     Indication: Lymphoma
     Route: 042
     Dates: end: 20101210
  10. ONDANSETRON HYDROCHLORIDE [Suspect]
     Active Substance: ONDANSETRON HYDROCHLORIDE
     Route: 048
  11. POLARAMINE [Suspect]
     Active Substance: DEXCHLORPHENIRAMINE MALEATE
     Indication: Mantle cell lymphoma recurrent
     Route: 048

REACTIONS (4)
  - Gynaecomastia [Unknown]
  - Hot flush [Unknown]
  - Hypogonadism [Unknown]
  - Breast pain [Unknown]
